FAERS Safety Report 26025602 (Version 1)
Quarter: 2025Q4

REPORT INFORMATION
  Report Type: Spontaneous
  Country: GB (occurrence: GB)
  Receive Date: 20251111
  Receipt Date: 20251111
  Transmission Date: 20260118
  Serious: Yes (Hospitalization)
  Sender: RANBAXY
  Company Number: GB-SUN PHARMACEUTICAL INDUSTRIES LTD-2025RR-534002

PATIENT
  Age: 75 Year
  Sex: Female

DRUGS (1)
  1. ETODOLAC [Suspect]
     Active Substance: ETODOLAC
     Indication: Arthritis
     Dosage: UNK
     Route: 065

REACTIONS (1)
  - Small intestinal obstruction [Recovered/Resolved]
